FAERS Safety Report 22633012 (Version 1)
Quarter: 2023Q2

REPORT INFORMATION
  Report Type: Report from Study
  Country: US (occurrence: US)
  Receive Date: 20230623
  Receipt Date: 20230623
  Transmission Date: 20230722
  Serious: Yes (Hospitalization)
  Sender: FDA-Public Use
  Company Number: US-ABBVIE-5298865

PATIENT
  Sex: Male

DRUGS (1)
  1. RINVOQ [Suspect]
     Active Substance: UPADACITINIB
     Indication: Product used for unknown indication
     Route: 048

REACTIONS (4)
  - Fall [Recovering/Resolving]
  - Hip fracture [Recovering/Resolving]
  - Lower limb fracture [Recovering/Resolving]
  - Joint injury [Recovering/Resolving]

NARRATIVE: CASE EVENT DATE: 20230101
